FAERS Safety Report 6087310-X (Version None)
Quarter: 2009Q1

REPORT INFORMATION
  Report Type: 
  Country: None (occurrence: None)
  Receive Date: 20090223
  Receipt Date: 20090219
  Transmission Date: 20090719
  Serious: Yes (Hospitalization)
  Sender: FDA-Public Use
  Company Number: A0769314A

PATIENT
  Age: 68 Year
  Sex: Male

DRUGS (4)
  1. ADVAIR HFA [Suspect]
     Dosage: 1PUFF TWICE PER DAY
     Route: 055
     Dates: start: 20090116
  2. SPIRIVA [Concomitant]
  3. ALBUTEROL [Concomitant]
  4. FLONASE [Concomitant]

REACTIONS (3)
  - BREATH SOUNDS ABNORMAL [None]
  - LOWER RESPIRATORY TRACT INFECTION [None]
  - WHEEZING [None]
